FAERS Safety Report 8096590-0 (Version None)
Quarter: 2012Q1

REPORT INFORMATION
  Report Type: 
  Country: None (occurrence: None)
  Receive Date: 20120131
  Receipt Date: 20120117
  Transmission Date: 20120608
  Serious: Yes (Hospitalization)
  Sender: FDA-Public Use
  Company Number: AU-UCBSA-034684

PATIENT
  Sex: Male

DRUGS (8)
  1. MIDAZOLAM [Suspect]
     Indication: CONVULSION
     Route: 048
     Dates: start: 20110101, end: 20110101
  2. VALPROATE SODIUM [Suspect]
     Dosage: DAILY DOSE 750 MG
     Route: 048
  3. KEPPRA [Suspect]
     Dosage: 500 MG OM;250 MG ON
     Route: 048
     Dates: start: 20110101
  4. VALPROATE SODIUM [Suspect]
     Route: 048
  5. KEPPRA [Suspect]
     Indication: EPILEPSY
     Dosage: UNKNOWN DOSE
     Route: 048
     Dates: end: 20100301
  6. KEPPRA [Suspect]
     Dosage: DAILY DOSE 1000 MG
     Route: 048
     Dates: start: 20110301, end: 20110425
  7. MIDAZOLAM [Suspect]
     Dosage: DAILY DOSE 500 MG
     Route: 048
  8. KEPPRA [Suspect]
     Dosage: DAILY DOSE 1000 MG
     Route: 048

REACTIONS (11)
  - PARAESTHESIA [None]
  - CONVULSION [None]
  - VISION BLURRED [None]
  - DEPRESSED MOOD [None]
  - THERAPY REGIMEN CHANGED [None]
  - TREMOR [None]
  - EUPHORIC MOOD [None]
  - HYPOAESTHESIA [None]
  - PHOTOSENSITIVITY REACTION [None]
  - FEELING ABNORMAL [None]
  - EYE PAIN [None]
